FAERS Safety Report 25741272 (Version 1)
Quarter: 2025Q3

REPORT INFORMATION
  Report Type: Spontaneous
  Country: EU (occurrence: EU)
  Receive Date: 20250829
  Receipt Date: 20250829
  Transmission Date: 20251021
  Serious: Yes (Other)
  Sender: JOHNSON AND JOHNSON
  Company Number: EU-JNJFOC-20250834363

PATIENT

DRUGS (1)
  1. STELARA [Suspect]
     Active Substance: USTEKINUMAB
     Indication: Gastroenteritis
     Route: 058

REACTIONS (6)
  - Ileal stenosis [Unknown]
  - Gastroenteritis [Not Recovered/Not Resolved]
  - Faecal calprotectin increased [Unknown]
  - Oedema [Unknown]
  - Lymphocytic infiltration [Unknown]
  - Off label use [Unknown]
